FAERS Safety Report 7799934-X (Version None)
Quarter: 2011Q4

REPORT INFORMATION
  Report Type: 
  Country: None (occurrence: None)
  Receive Date: 20111006
  Receipt Date: 20111004
  Transmission Date: 20120403
  Serious: Yes (Death, Hospitalization)
  Sender: FDA-Public Use
  Company Number: FR-ROCHE-695027

PATIENT
  Age: 37 Year
  Sex: Female

DRUGS (17)
  1. MABTHERA [Suspect]
     Indication: POLYMYOSITIS
     Route: 042
  2. PREDNISONE [Concomitant]
  3. METHOTREXATE [Suspect]
     Indication: POLYMYOSITIS
     Route: 065
     Dates: start: 20011201, end: 20021101
  4. PREDNISONE [Concomitant]
  5. MABTHERA [Suspect]
     Route: 042
  6. MYCOPHENOLATE MOFETIL [Suspect]
     Indication: POLYMYOSITIS
     Route: 065
  7. CYCLOSPORINE [Suspect]
     Indication: POLYMYOSITIS
     Route: 065
  8. MABTHERA [Suspect]
     Route: 042
  9. IMURAN [Suspect]
     Indication: POLYMYOSITIS
     Route: 065
     Dates: start: 20021101, end: 20050201
  10. PREDNISONE [Concomitant]
     Indication: POLYMYOSITIS
  11. MABTHERA [Suspect]
     Route: 042
  12. PREDNISONE [Concomitant]
  13. PREDNISONE [Concomitant]
  14. IMMUNE GLOBULIN NOS [Concomitant]
     Indication: POLYMYOSITIS
     Route: 042
  15. MABTHERA [Suspect]
     Dosage: FORM: INFUSION
     Route: 042
  16. PREDNISONE [Concomitant]
  17. PREDNISONE [Concomitant]
     Dates: start: 20060301, end: 20070501

REACTIONS (3)
  - PROGRESSIVE MULTIFOCAL LEUKOENCEPHALOPATHY [None]
  - DRUG INEFFECTIVE [None]
  - PNEUMONIA ASPIRATION [None]
